FAERS Safety Report 5389729-9 (Version None)
Quarter: 2007Q3

REPORT INFORMATION
  Report Type: 
  Country: None (occurrence: None)
  Receive Date: 20070713
  Receipt Date: 20070702
  Transmission Date: 20080115
  Serious: Yes (Hospitalization, Other)
  Sender: FDA-Public Use
  Company Number: 100#08#2007-02456

PATIENT
  Age: 23 Year
  Sex: Female

DRUGS (5)
  1. FLUOXETINE [Suspect]
     Indication: DEPRESSION
     Dosage: 20 MG; OVER 1 YEAR
  2. AMISULPRIDE (AMISULPRIDE) (AMISULPRIDE) [Suspect]
     Indication: DISTURBANCE IN ATTENTION
     Dosage: 100 MG; OVER 14 DAYS
  3. AMISULPRIDE (AMISULPRIDE) (AMISULPRIDE) [Suspect]
     Indication: IRRITABILITY
     Dosage: 100 MG; OVER 14 DAYS
  4. QUETIAPINE FUMARATE [Suspect]
     Indication: DISTURBANCE IN ATTENTION
     Dosage: 25 MG; (OVER 14 DAYS)
  5. QUETIAPINE FUMARATE [Suspect]
     Indication: IRRITABILITY
     Dosage: 25 MG; (OVER 14 DAYS)

REACTIONS (3)
  - DRUG INTERACTION [None]
  - GALACTORRHOEA [None]
  - RHABDOMYOLYSIS [None]
